FAERS Safety Report 6349299-5 (Version None)
Quarter: 2009Q3

REPORT INFORMATION
  Report Type: 
  Country: None (occurrence: None)
  Receive Date: 20090911
  Receipt Date: 20090902
  Transmission Date: 20100115
  Serious: Yes (Hospitalization)
  Sender: FDA-Public Use
  Company Number: B0576361A

PATIENT
  Sex: Female
  Weight: 59 kg

DRUGS (6)
  1. LAMICTAL [Suspect]
     Indication: EPILEPSY
     Route: 048
     Dates: start: 20080801, end: 20090501
  2. PREVISCAN [Concomitant]
     Dosage: .5TAB PER DAY
     Route: 048
  3. ATACAND [Concomitant]
     Dosage: 16MG PER DAY
     Route: 048
  4. PENTASA [Concomitant]
     Dosage: 2UNIT PER DAY
     Route: 048
     Dates: start: 20080601
  5. URBANYL [Concomitant]
     Route: 048
     Dates: start: 20081001
  6. TEMESTA [Concomitant]
     Dosage: 2.5MG PER DAY
     Route: 048

REACTIONS (7)
  - BLISTER [None]
  - EPILEPSY [None]
  - FALL [None]
  - IMPAIRED HEALING [None]
  - LOSS OF CONSCIOUSNESS [None]
  - MALAISE [None]
  - PERIVASCULAR DERMATITIS [None]
